FAERS Safety Report 14998988 (Version 2)
Quarter: 2019Q2

REPORT INFORMATION
  Report Type: Spontaneous
  Country: AU (occurrence: AU)
  Receive Date: 20180612
  Receipt Date: 20190426
  Transmission Date: 20190711
  Serious: Yes (Hospitalization)
  Sender: FDA-Public Use
  Company Number: AU-009507513-1806AUS004162

PATIENT
  Age: 8 Year
  Sex: Female

DRUGS (2)
  1. NASONEX [Suspect]
     Active Substance: MOMETASONE FUROATE
     Dosage: 1 PUFF AT BEDTIME
     Route: 045
     Dates: start: 201601, end: 201701
  2. NASONEX [Suspect]
     Active Substance: MOMETASONE FUROATE
     Dosage: UNK
     Route: 045
     Dates: start: 201701, end: 201708

REACTIONS (6)
  - Product use in unapproved indication [Unknown]
  - Intraocular pressure increased [Unknown]
  - Cataract [Unknown]
  - Myopia [Unknown]
  - Visual impairment [Unknown]
  - Product use issue [Unknown]

NARRATIVE: CASE EVENT DATE: 201607
